FAERS Safety Report 14186793 (Version 3)
Quarter: 2018Q1

REPORT INFORMATION
  Report Type: Spontaneous
  Country: NO (occurrence: NO)
  Receive Date: 20171114
  Receipt Date: 20180105
  Transmission Date: 20180508
  Serious: Yes (Death, Hospitalization)
  Sender: FDA-Public Use
  Company Number: NO-JNJFOC-20171113684

PATIENT
  Sex: Male
  Weight: 75 kg

DRUGS (4)
  1. STELARA [Suspect]
     Active Substance: USTEKINUMAB
     Indication: PSORIASIS
     Route: 058
     Dates: start: 201106, end: 201406
  2. STELARA [Suspect]
     Active Substance: USTEKINUMAB
     Indication: ERYTHRODERMIC PSORIASIS
     Route: 058
     Dates: start: 201106, end: 201406
  3. XARELTO [Concomitant]
     Active Substance: RIVAROXABAN
     Indication: DEEP VEIN THROMBOSIS
     Route: 065
  4. ATACAND [Concomitant]
     Active Substance: CANDESARTAN CILEXETIL
     Indication: HYPERTENSION
     Route: 065

REACTIONS (6)
  - Vena cava thrombosis [Unknown]
  - Death [Fatal]
  - Pulmonary embolism [Unknown]
  - Hepatic cirrhosis [Not Recovered/Not Resolved]
  - Deep vein thrombosis [Unknown]
  - Pelvic venous thrombosis [Unknown]

NARRATIVE: CASE EVENT DATE: 2016
